FAERS Safety Report 6856808-6 (Version None)
Quarter: 2010Q3

REPORT INFORMATION
  Report Type: 
  Country: None (occurrence: None)
  Receive Date: 20100714
  Receipt Date: 20100531
  Transmission Date: 20110219
  Serious: Yes (Congenital Anomaly, Other)
  Sender: FDA-Public Use
  Company Number: 167-20484-09111634

PATIENT
  Sex: Male
  Weight: 3 kg

DRUGS (13)
  1. INNOHEP [Suspect]
     Dosage: TRANSPLACENTAL
     Route: 064
  2. FERROUS SULFATE TAB [Concomitant]
  3. LACTULOSE [Concomitant]
  4. CO-DYDRAMOL (PARACETAMOL, DIHYDROCODEINE BITARTRATE) [Concomitant]
  5. GAVISCON (SODIUM BICARBONATE, ALUMINUM HYDROXIDE GEL, DRIED, ALGINIC A [Concomitant]
  6. TEMAZEPAM [Concomitant]
  7. MEPERIDINE HCL [Concomitant]
  8. DICLOFENAC SODIUM [Concomitant]
  9. DEXAMETHASONE [Concomitant]
  10. CIMETIDINE [Concomitant]
  11. SODIUM CITRATE [Concomitant]
  12. MARCAIN (EPINEPHRINE, BUPIVACAINE) [Concomitant]
  13. MORPHINE [Concomitant]

REACTIONS (4)
  - CAESAREAN SECTION [None]
  - CRYPTORCHISM [None]
  - MATERNAL DRUGS AFFECTING FOETUS [None]
  - PREMATURE BABY [None]
